FAERS Safety Report 19184207 (Version 1)
Quarter: 2021Q2

REPORT INFORMATION
  Report Type: Spontaneous
  Country: US (occurrence: US)
  Receive Date: 20210426
  Receipt Date: 20210426
  Transmission Date: 20210717
  Serious: No
  Sender: FDA-Public Use
  Company Number: None

PATIENT
  Age: 57 Year
  Sex: Female

DRUGS (1)
  1. ORENCIA [Suspect]
     Active Substance: ABATACEPT
     Dosage: OTHER FREQUENCY:OTHER;?
     Route: 058
     Dates: start: 202012

REACTIONS (2)
  - Therapy interrupted [None]
  - Device malfunction [None]

NARRATIVE: CASE EVENT DATE: 20210426
